FAERS Safety Report 14102385 (Version 1)
Quarter: 2017Q4

REPORT INFORMATION
  Report Type: Spontaneous
  Country: US (occurrence: None)
  Receive Date: 20171018
  Receipt Date: 20171018
  Transmission Date: 20180321
  Serious: Yes (Death, Hospitalization)
  Sender: FDA-Public Use
  Company Number: None

PATIENT
  Age: 72 Year
  Sex: Female
  Weight: 128.4 kg

DRUGS (3)
  1. DEXAMETHASONE. [Concomitant]
     Active Substance: DEXAMETHASONE
  2. MEMANTINE HYDROCHLORIDE. [Suspect]
     Active Substance: MEMANTINE HYDROCHLORIDE
     Dates: end: 20170619
  3. ZOSYN [Concomitant]
     Active Substance: PIPERACILLIN SODIUM\TAZOBACTAM SODIUM

REACTIONS (10)
  - Arthralgia [None]
  - Sepsis [None]
  - Meningoencephalitis herpetic [None]
  - Troponin increased [None]
  - Bundle branch block right [None]
  - Fall [None]
  - Thrombocytopenia [None]
  - Electrocardiogram ST-T segment abnormal [None]
  - Sinus tachycardia [None]
  - Leukopenia [None]

NARRATIVE: CASE EVENT DATE: 20170616
